FAERS Safety Report 9170197 (Version 2)
Quarter: 2013Q2

REPORT INFORMATION
  Report Type: Spontaneous
  Country: TR (occurrence: TR)
  Receive Date: 20130319
  Receipt Date: 20130419
  Transmission Date: 20140414
  Serious: Yes (Other)
  Sender: FDA-Public Use
  Company Number: PHHY2013TR010999

PATIENT
  Age: 54 Year
  Sex: Female

DRUGS (5)
  1. TRILEPTAL [Suspect]
     Indication: EPILEPSY
     Dosage: 600 MG, BID
     Dates: start: 201108, end: 201209
  2. TRILEPTAL [Suspect]
     Dosage: 600 MG, BID
  3. TRILEPTAL [Suspect]
     Dosage: 900 MG (300MG IN MORNING AND 600MG IN EVENING)
  4. KEPPRA [Concomitant]
     Indication: EPILEPSY
     Dosage: 500 MG, BID
  5. ANTIALLERGIC AGENTS [Concomitant]
     Indication: HYPERSENSITIVITY

REACTIONS (10)
  - Inappropriate antidiuretic hormone secretion [Unknown]
  - Hyponatraemia [Unknown]
  - Swelling face [Unknown]
  - Oedema peripheral [Unknown]
  - Vomiting [Unknown]
  - Dizziness [Unknown]
  - Vertigo [Unknown]
  - Convulsion [Unknown]
  - Cough [Recovered/Resolved]
  - Paraesthesia [Unknown]
